FAERS Safety Report 7067978-1 (Version None)
Quarter: 2010Q4

REPORT INFORMATION
  Report Type: 
  Country: None (occurrence: None)
  Receive Date: 20101028
  Receipt Date: 20101020
  Transmission Date: 20110411
  Serious: Yes (Hospitalization)
  Sender: FDA-Public Use
  Company Number: US-US-EMD SERONO, INC.-7021450

PATIENT
  Sex: Female
  Weight: 120 kg

DRUGS (9)
  1. REBIF [Suspect]
     Indication: MULTIPLE SCLEROSIS
     Route: 058
     Dates: start: 20091116
  2. SEROQUEL [Concomitant]
     Dates: end: 20100901
  3. SEROQUEL [Concomitant]
     Dates: start: 20100101
  4. KLONOPIN [Concomitant]
  5. PAIN MEDICATIONS [Concomitant]
  6. COUMADIN [Concomitant]
  7. OXYMORPHONE [Concomitant]
  8. ONDANSETRON [Concomitant]
  9. TIZANIDINE HCL [Concomitant]

REACTIONS (14)
  - ARTHRALGIA [None]
  - CHILLS [None]
  - CONSTIPATION [None]
  - DYSSTASIA [None]
  - FALL [None]
  - FATIGUE [None]
  - HYPOAESTHESIA [None]
  - LOSS OF CONSCIOUSNESS [None]
  - MEMORY IMPAIRMENT [None]
  - MENORRHAGIA [None]
  - MYALGIA [None]
  - PROGRESSIVE MULTIPLE SCLEROSIS [None]
  - PYREXIA [None]
  - URINARY RETENTION [None]
